FAERS Safety Report 10203575 (Version 1)
Quarter: 2014Q2

REPORT INFORMATION
  Report Type: Spontaneous
  Country: US (occurrence: US)
  Receive Date: 20140529
  Receipt Date: 20140529
  Transmission Date: 20141212
  Serious: No
  Sender: FDA-Public Use
  Company Number: US-MYLANLABS-2013S1018668

PATIENT
  Age: 68 Year
  Sex: Female
  Weight: 76.2 kg

DRUGS (2)
  1. ZOLPIDEM TARTRATE TABLETS [Suspect]
     Indication: INSOMNIA
     Route: 048
     Dates: start: 20130807, end: 20130811
  2. CLONAZEPAM [Concomitant]

REACTIONS (2)
  - Drug ineffective [Not Recovered/Not Resolved]
  - Insomnia [Not Recovered/Not Resolved]
